FAERS Safety Report 24399728 (Version 2)
Quarter: 2024Q4

REPORT INFORMATION
  Report Type: Spontaneous
  Country: JP (occurrence: JP)
  Receive Date: 20241005
  Receipt Date: 20241130
  Transmission Date: 20250115
  Serious: Yes (Life-Threatening, Hospitalization, Congenital Anomaly, Other)
  Sender: ACCORD
  Company Number: JP-Accord-449477

PATIENT
  Sex: Female
  Weight: 1.3 kg

DRUGS (4)
  1. MYCOPHENOLATE MOFETIL [Suspect]
     Active Substance: MYCOPHENOLATE MOFETIL
     Route: 064
  2. TELMISARTAN [Suspect]
     Active Substance: TELMISARTAN
     Route: 064
  3. IBUPROFEN [Suspect]
     Active Substance: IBUPROFEN
     Route: 064
  4. DOMPERIDONE [Suspect]
     Active Substance: DOMPERIDONE
     Route: 064

REACTIONS (21)
  - Foetal exposure during pregnancy [Unknown]
  - Gastrointestinal haemorrhage [Unknown]
  - Patent ductus arteriosus [Unknown]
  - Oesophageal atresia [Unknown]
  - Renal fusion anomaly [Unknown]
  - Neonatal respiratory distress [Unknown]
  - Micrognathia [Unknown]
  - Cleft palate [Unknown]
  - Microphthalmos [Unknown]
  - Ear malformation [Unknown]
  - Pterygium colli [Unknown]
  - Shoulder deformity [Unknown]
  - Tracheo-oesophageal fistula [Unknown]
  - Cleidocranial dysostosis [Unknown]
  - Liver disorder [Unknown]
  - Pulmonary malformation [Unknown]
  - Congenital central nervous system anomaly [Unknown]
  - Intraventricular haemorrhage [Unknown]
  - Hypoxic ischaemic encephalopathy neonatal [Unknown]
  - Vaginal hypoplasia [Unknown]
  - Uterine aplasia [Unknown]
